FAERS Safety Report 4317460-7 (Version None)
Quarter: 2004Q1

REPORT INFORMATION
  Report Type: 
  Country: None (occurrence: None)
  Receive Date: 20040312
  Receipt Date: 20040302
  Transmission Date: 20041129
  Serious: Yes (Hospitalization)
  Sender: FDA-Public Use
  Company Number: 2004-03-0139

PATIENT
  Age: 54 Year
  Sex: Female

DRUGS (2)
  1. TRILAFON [Suspect]
     Dosage: 50 MG INTRAMUSCULAR
     Route: 030
  2. CLONAZEPAM [Concomitant]

REACTIONS (12)
  - BLOOD CREATINE PHOSPHOKINASE INCREASED [None]
  - BLOOD CREATINE PHOSPHOKINASE MB INCREASED [None]
  - DYSTONIA [None]
  - EXTRAPYRAMIDAL DISORDER [None]
  - LEUKOCYTOSIS [None]
  - MUSCLE RIGIDITY [None]
  - MYOGLOBIN BLOOD INCREASED [None]
  - NEUTROPHILIA [None]
  - TORTICOLLIS [None]
  - TREMOR [None]
  - TRISMUS [None]
  - TROPONIN I INCREASED [None]
